FAERS Safety Report 17638459 (Version 2)
Quarter: 2021Q2

REPORT INFORMATION
  Report Type: Spontaneous
  Country: US (occurrence: US)
  Receive Date: 20200407
  Receipt Date: 20210510
  Transmission Date: 20210716
  Serious: No
  Sender: FDA-Public Use
  Company Number: US-AUROBINDO-AUR-APL-2020-003129

PATIENT
  Sex: Female

DRUGS (1)
  1. GUAIFENESIN AND DEXTROMETHORPHAN HYDROBROMIDE 1200MG/60MG [Suspect]
     Active Substance: DEXTROMETHORPHAN HYDROBROMIDE\GUAIFENESIN
     Indication: PRODUCT USED FOR UNKNOWN INDICATION
     Dosage: UNK
     Route: 065
     Dates: start: 20200106

REACTIONS (2)
  - Product use complaint [Unknown]
  - Product closure removal difficult [Unknown]

NARRATIVE: CASE EVENT DATE: 20200106
